FAERS Safety Report 8248558-9 (Version None)
Quarter: 2012Q1

REPORT INFORMATION
  Report Type: 
  Country: None (occurrence: None)
  Receive Date: 20120330
  Receipt Date: 20120319
  Transmission Date: 20120608
  Serious: Yes (Hospitalization)
  Sender: FDA-Public Use
  Company Number: US-RB-038474-12

PATIENT
  Age: 48 Year
  Sex: Female

DRUGS (1)
  1. SUBOXONE [Suspect]
     Indication: PRODUCT USED FOR UNKNOWN INDICATION
     Dosage: DOSING DETAILS NOT PROVIDED
     Route: 065

REACTIONS (8)
  - THERAPEUTIC RESPONSE UNEXPECTED [None]
  - HALLUCINATION [None]
  - COUGH [None]
  - TACHYPHRENIA [None]
  - FATIGUE [None]
  - INSOMNIA [None]
  - PNEUMONIA PRIMARY ATYPICAL [None]
  - EYE DISORDER [None]
